FAERS Safety Report 13056283 (Version 1)
Quarter: 2016Q4

REPORT INFORMATION
  Report Type: Spontaneous
  Country: US (occurrence: US)
  Receive Date: 20161222
  Receipt Date: 20161222
  Transmission Date: 20170207
  Serious: No
  Sender: FDA-Public Use
  Company Number: US-PFIZER INC-2016581337

PATIENT
  Sex: Female

DRUGS (2)
  1. XANAX [Suspect]
     Active Substance: ALPRAZOLAM
     Indication: PANIC ATTACK
  2. XANAX [Suspect]
     Active Substance: ALPRAZOLAM
     Indication: ANXIETY
     Dosage: UNK

REACTIONS (7)
  - Cubital tunnel syndrome [Unknown]
  - Crying [Unknown]
  - Insomnia [Unknown]
  - Drug ineffective [Unknown]
  - Nerve injury [Unknown]
  - Back disorder [Unknown]
  - Limb discomfort [Unknown]
